FAERS Safety Report 24720599 (Version 2)
Quarter: 2025Q1

REPORT INFORMATION
  Report Type: Spontaneous
  Country: DE (occurrence: DE)
  Receive Date: 20241211
  Receipt Date: 20250115
  Transmission Date: 20250408
  Serious: Yes (Hospitalization, Other)
  Sender: MERCK
  Company Number: DE-BAYER-2024A165020

PATIENT
  Age: 19 Year
  Sex: Male
  Weight: 66 kg

DRUGS (7)
  1. SOTATERCEPT [Suspect]
     Active Substance: SOTATERCEPT
     Dates: start: 202407
  2. ADEMPAS [Suspect]
     Active Substance: RIOCIGUAT
     Indication: Pulmonary hypertension
     Dosage: 2.5 MILLIGRAM, TID
     Route: 048
     Dates: start: 202407
  3. LASIX [Concomitant]
     Active Substance: FUROSEMIDE
  4. AMBRISENTAN [Concomitant]
     Active Substance: AMBRISENTAN
  5. TREPROSTINIL [Concomitant]
     Active Substance: TREPROSTINIL
     Route: 042
  6. TOREMIFENE [Concomitant]
     Active Substance: TOREMIFENE
  7. EPLERENONE [Concomitant]
     Active Substance: EPLERENONE

REACTIONS (2)
  - Pericardial effusion [Recovering/Resolving]
  - Right ventricular failure [Unknown]

NARRATIVE: CASE EVENT DATE: 20240301
